FAERS Safety Report 6211116-1 (Version None)
Quarter: 2009Q2

REPORT INFORMATION
  Report Type: 
  Country: None (occurrence: None)
  Receive Date: 20090528
  Receipt Date: 20090514
  Transmission Date: 20091009
  Serious: Yes (Hospitalization)
  Sender: FDA-Public Use
  Company Number: 2009AP001983

PATIENT
  Sex: 0

DRUGS (1)
  1. OMEPRAZOLE [Suspect]
     Dosage: 40 MG; PO
     Route: 048

REACTIONS (1)
  - REACTION TO DRUG EXCIPIENTS [None]
